FAERS Safety Report 8457756-0 (Version None)
Quarter: 2012Q2

REPORT INFORMATION
  Report Type: 
  Country: None (occurrence: None)
  Receive Date: 20120618
  Receipt Date: 20120618
  Transmission Date: 20120825
  Serious: Yes (Hospitalization, Other)
  Sender: FDA-Public Use
  Company Number: None

PATIENT
  Sex: Female

DRUGS (2)
  1. ZIPRASIDONE HCL [Suspect]
     Indication: BIPOLAR DISORDER
     Dates: start: 20120612, end: 20120615
  2. CARBAMAZEPINE [Suspect]
     Indication: BIPOLAR DISORDER
     Dates: start: 20120612, end: 20120615

REACTIONS (15)
  - CONFUSIONAL STATE [None]
  - HEADACHE [None]
  - THIRST [None]
  - MOOD ALTERED [None]
  - DRY MOUTH [None]
  - ORAL PAIN [None]
  - BACK PAIN [None]
  - CRYING [None]
  - SOMNOLENCE [None]
  - DYSSTASIA [None]
  - VISION BLURRED [None]
  - MUSCULOSKELETAL STIFFNESS [None]
  - DEPRESSION [None]
  - STRESS [None]
  - HERPES SIMPLEX [None]
